FAERS Safety Report 8956792 (Version 1)
Quarter: 2012Q4

REPORT INFORMATION
  Report Type: 
  Country: FR (occurrence: US)
  Receive Date: 20121211
  Receipt Date: 20121211
  Transmission Date: 20130627
  Serious: Yes (Other)
  Sender: FDA-Public Use
  Company Number: US-009507513-1107USA02236

PATIENT
  Sex: Female

DRUGS (4)
  1. JANUVIA [Suspect]
     Route: 048
  2. METFORMIN [Suspect]
  3. GLUCOTROL [Suspect]
  4. LANTUS [Suspect]
     Indication: TYPE 2 DIABETES MELLITUS
     Dosage: 40 IU, qd
     Route: 058
     Dates: start: 2010

REACTIONS (1)
  - Diabetes mellitus inadequate control [Unknown]
